FAERS Safety Report 7733722-5 (Version None)
Quarter: 2011Q3

REPORT INFORMATION
  Report Type: 
  Country: None (occurrence: None)
  Receive Date: 20110901
  Receipt Date: 20110822
  Transmission Date: 20111222
  Serious: Yes (Death)
  Sender: FDA-Public Use
  Company Number: 2011BN000077

PATIENT

DRUGS (4)
  1. CLOFARABINE [Suspect]
     Indication: BONE MARROW CONDITIONING REGIMEN
     Dosage: 40 MG/M**2; QD; IV
     Route: 042
  2. TACROLIMUS [Suspect]
     Indication: PROPHYLAXIS AGAINST TRANSPLANT REJECTION
     Dosage: 0.02 MG/KG;  ;IV
     Route: 042
  3. SIROLIMUS [Suspect]
     Indication: PROPHYLAXIS AGAINST TRANSPLANT REJECTION
     Dosage: 12 MG; 1X; PO  4 MG; QD; PO
     Route: 048
  4. MELPHALAN HYDROCHLORIDE [Suspect]
     Indication: BONE MARROW CONDITIONING REGIMEN
     Dosage: 100 MG/M**2; IX; IV
     Route: 042

REACTIONS (3)
  - ACUTE GRAFT VERSUS HOST DISEASE IN LIVER [None]
  - THROMBOTIC MICROANGIOPATHY [None]
  - CEREBRAL HAEMORRHAGE [None]
